FAERS Safety Report 8056827-0 (Version None)
Quarter: 2012Q1

REPORT INFORMATION
  Report Type: 
  Country: None (occurrence: None)
  Receive Date: 20120119
  Receipt Date: 20120118
  Transmission Date: 20120608
  Serious: No
  Sender: FDA-Public Use
  Company Number: US-BAYER-2012-005942

PATIENT
  Age: 54 Year
  Sex: Male

DRUGS (4)
  1. NAPROXEN [Concomitant]
  2. HYDROCODONE BITARTRATE AND ACETAMINOPHEN [Concomitant]
  3. BETASERON [Suspect]
     Dosage: 0.25 MG, QOD
     Route: 058
  4. CYCLOBENZAPRINE [Concomitant]

REACTIONS (4)
  - INJECTION SITE PAIN [None]
  - INJECTION SITE SCAB [None]
  - INJECTION SITE ULCER [None]
  - INJECTION SITE ERYTHEMA [None]
